FAERS Safety Report 5236372-8 (Version None)
Quarter: 2007Q1

REPORT INFORMATION
  Report Type: 
  Country: None (occurrence: None)
  Receive Date: 20061208
  Receipt Date: 20060120
  Transmission Date: 20070707
  Serious: Yes (Other)
  Sender: FDA-Public Use
  Company Number: 2006UW01092

PATIENT
  Age: 64 Year
  Sex: Female
  Weight: 68.038 kg

DRUGS (7)
  1. CRESTOR [Suspect]
     Indication: BLOOD CHOLESTEROL INCREASED
     Dosage: 10 MG DAILY PO
     Route: 048
     Dates: start: 20051201, end: 20051201
  2. METHOTREXATE [Concomitant]
  3. HYDROCHLOROTHIAZIDE [Concomitant]
  4. BETAXOLOL [Concomitant]
  5. OMEGA 3 [Concomitant]
  6. FOLIC ACID [Concomitant]
  7. ASPIRIN [Concomitant]

REACTIONS (1)
  - URINE ODOUR ABNORMAL [None]
